FAERS Safety Report 10400928 (Version 7)
Quarter: 2016Q4

REPORT INFORMATION
  Report Type: Report from Study
  Country: DE (occurrence: DE)
  Receive Date: 20140821
  Receipt Date: 20161227
  Transmission Date: 20170206
  Serious: Yes (Other)
  Sender: FDA-Public Use
  Company Number: DE-ROCHE-1452727

PATIENT

DRUGS (7)
  1. BEVACIZUMAB [Suspect]
     Active Substance: BEVACIZUMAB
     Indication: COLORECTAL CANCER METASTATIC
     Dosage: OVER 90 MIN
     Route: 042
  2. BEVACIZUMAB [Suspect]
     Active Substance: BEVACIZUMAB
     Route: 042
  3. BEVACIZUMAB [Suspect]
     Active Substance: BEVACIZUMAB
     Route: 042
  4. FLUOROURACIL. [Suspect]
     Active Substance: FLUOROURACIL
     Indication: COLORECTAL CANCER METASTATIC
     Route: 040
  5. FOLINIC ACID [Suspect]
     Active Substance: LEUCOVORIN
     Indication: COLORECTAL CANCER METASTATIC
     Route: 042
  6. IRINOTECAN [Suspect]
     Active Substance: IRINOTECAN
     Indication: COLORECTAL CANCER METASTATIC
     Route: 042
  7. FLUOROURACIL. [Suspect]
     Active Substance: FLUOROURACIL
     Route: 041

REACTIONS (35)
  - Speech disorder [Unknown]
  - Subileus [Unknown]
  - VIth nerve paralysis [Unknown]
  - Dehydration [Unknown]
  - Myocardial ischaemia [Unknown]
  - Weight increased [Unknown]
  - Gamma-glutamyltransferase increased [Unknown]
  - Activated partial thromboplastin time prolonged [Unknown]
  - Cholangitis [Unknown]
  - Dyspnoea exertional [Unknown]
  - Hyperhidrosis [Unknown]
  - Hypermagnesaemia [Unknown]
  - Infected fistula [Unknown]
  - Gastrointestinal perforation [Unknown]
  - Hypernatraemia [Unknown]
  - Mental disorder [Unknown]
  - Tumour perforation [Unknown]
  - Amenorrhoea [Unknown]
  - Cardiac failure [Unknown]
  - Cerebral ischaemia [Unknown]
  - Hypotension [Unknown]
  - Hyponatraemia [Unknown]
  - Device related infection [Unknown]
  - Impaired healing [Unknown]
  - Inflammatory marker increased [Unknown]
  - Sepsis [Unknown]
  - Metastasis [Unknown]
  - Proteinuria [Unknown]
  - Febrile neutropenia [Unknown]
  - Ileus [Unknown]
  - Neurotoxicity [Unknown]
  - Abdominal wall haematoma [Unknown]
  - Flatulence [Unknown]
  - Hemiparesis [Unknown]
  - Ligament rupture [Unknown]
